APPROVED DRUG PRODUCT: DOCETAXEL
Active Ingredient: DOCETAXEL
Strength: 80MG/4ML (20MG/ML)
Dosage Form/Route: INJECTABLE;INJECTION
Application: A203877 | Product #002
Applicant: TEVA PHARMACEUTICALS USA
Approved: Sep 16, 2015 | RLD: No | RS: No | Type: DISCN